FAERS Safety Report 5448906-9 (Version None)
Quarter: 2007Q3

REPORT INFORMATION
  Report Type: 
  Country: None (occurrence: None)
  Receive Date: 20070911
  Receipt Date: 20070906
  Transmission Date: 20080115
  Serious: Yes (Hospitalization)
  Sender: FDA-Public Use
  Company Number: PL-AVENTIS-200718127GDDC

PATIENT
  Age: 59 Year
  Sex: Male
  Weight: 92 kg

DRUGS (4)
  1. ARAVA [Suspect]
     Indication: RHEUMATOID ARTHRITIS
     Route: 048
     Dates: start: 20050401, end: 20060830
  2. ENCORTON [Concomitant]
     Indication: RHEUMATOID ARTHRITIS
     Route: 048
     Dates: start: 19900101
  3. METOHEXAL                          /00376902/ [Concomitant]
     Route: 048
     Dates: start: 20050101
  4. ENARENAL [Concomitant]
     Route: 048
     Dates: start: 20050101

REACTIONS (1)
  - RENAL FAILURE [None]
